FAERS Safety Report 4976744-X (Version None)
Quarter: 2006Q2

REPORT INFORMATION
  Report Type: 
  Country: None (occurrence: None)
  Receive Date: 20060419
  Receipt Date: 20060410
  Transmission Date: 20061013
  Serious: Yes (Other)
  Sender: FDA-Public Use
  Company Number: PHEH2006US04785

PATIENT
  Sex: Male

DRUGS (2)
  1. TRILEPTAL [Suspect]
  2. TOPAMAX [Suspect]

REACTIONS (2)
  - DRUG TOXICITY [None]
  - HEPATOTOXICITY [None]
